FAERS Safety Report 8098303 (Version 4)
Quarter: 2013Q4

REPORT INFORMATION
  Report Type: Spontaneous
  Country: US (occurrence: US)
  Receive Date: 20110819
  Receipt Date: 20131202
  Transmission Date: 20140711
  Serious: Yes (Hospitalization)
  Sender: FDA-Public Use
  Company Number: US-GLAXOSMITHKLINE-A0915695A

PATIENT
  Age: 74 Year
  Sex: Male
  Weight: 81.4 kg

DRUGS (2)
  1. AVANDIA [Suspect]
     Indication: DIABETES MELLITUS
     Dosage: 8MG PER DAY
     Route: 048
     Dates: start: 200002, end: 200405
  2. AVANDAMET [Suspect]
     Indication: DIABETES MELLITUS
     Route: 048
     Dates: end: 200404

REACTIONS (12)
  - Ischaemic cardiomyopathy [Unknown]
  - Tachycardia [Unknown]
  - Angina pectoris [Unknown]
  - Coronary artery disease [Unknown]
  - Cardiac failure congestive [Unknown]
  - Hyperlipidaemia [Unknown]
  - Fatigue [Unknown]
  - Asthenia [Unknown]
  - Implantable defibrillator insertion [Unknown]
  - Catheterisation cardiac [Unknown]
  - Ischaemic cardiomyopathy [Unknown]
  - Angina unstable [Unknown]
